FAERS Safety Report 9981455 (Version 1)
Quarter: 2014Q1

REPORT INFORMATION
  Report Type: Spontaneous
  Country: US (occurrence: US)
  Receive Date: 20140307
  Receipt Date: 20140307
  Transmission Date: 20141002
  Serious: Yes (Other)
  Sender: FDA-Public Use
  Company Number: US-ROXANE LABORATORIES, INC.-2014-RO-00339RO

PATIENT
  Sex: 0

DRUGS (1)
  1. METHADONE [Suspect]
     Indication: CANCER PAIN
     Route: 065

REACTIONS (1)
  - Therapeutic product ineffective [Unknown]
